FAERS Safety Report 6868923-1 (Version None)
Quarter: 2010Q3

REPORT INFORMATION
  Report Type: 
  Country: None (occurrence: None)
  Receive Date: 20100722
  Receipt Date: 20080815
  Transmission Date: 20110219
  Serious: No
  Sender: FDA-Public Use
  Company Number: US-PFIZER INC-2008053719

PATIENT
  Sex: Female
  Weight: 68 kg

DRUGS (4)
  1. CHANTIX [Suspect]
     Dates: start: 20080101, end: 20080101
  2. EFFEXOR [Concomitant]
  3. LEXAPRO [Concomitant]
  4. TRAZODONE [Concomitant]

REACTIONS (3)
  - DEPRESSION [None]
  - DIZZINESS [None]
  - NAUSEA [None]
